FAERS Safety Report 11049489 (Version 1)
Quarter: 2015Q2

REPORT INFORMATION
  Report Type: Spontaneous
  Country: US (occurrence: US)
  Receive Date: 20150420
  Receipt Date: 20150420
  Transmission Date: 20150821
  Serious: Yes (Hospitalization, Other)
  Sender: FDA-Public Use
  Company Number: US-MUNDIPHARMA DS AND PHARMACOVIGILANCE-USA-2014-0119099

PATIENT
  Age: 16 Month
  Sex: Female

DRUGS (1)
  1. OXYCONTIN [Suspect]
     Active Substance: OXYCODONE HYDROCHLORIDE
     Indication: ACCIDENTAL EXPOSURE TO PRODUCT BY CHILD

REACTIONS (3)
  - Epistaxis [Unknown]
  - Somnolence [Unknown]
  - Accidental exposure to product by child [Unknown]

NARRATIVE: CASE EVENT DATE: 20140621
